FAERS Safety Report 7209173-9 (Version None)
Quarter: 2011Q1

REPORT INFORMATION
  Report Type: 
  Country: None (occurrence: None)
  Receive Date: 20110103
  Receipt Date: 20110103
  Transmission Date: 20110831
  Serious: Yes (Life-Threatening, Hospitalization, Other)
  Sender: FDA-Public Use
  Company Number: None

PATIENT
  Age: 55 Year
  Sex: Male
  Weight: 90.7194 kg

DRUGS (4)
  1. VIOXX [Suspect]
     Indication: ARTHRALGIA
     Dosage: 50MG THREE TIME A DAY PO
     Route: 048
     Dates: start: 20011001, end: 20031227
  2. VIOXX [Suspect]
     Indication: ARTHRITIS
     Dosage: 50MG THREE TIME A DAY PO
     Route: 048
     Dates: start: 20011001, end: 20031227
  3. VIOXX [Suspect]
     Indication: BACK PAIN
     Dosage: 50MG THREE TIME A DAY PO
     Route: 048
     Dates: start: 20011001, end: 20031227
  4. VIOXX [Suspect]
     Indication: BONE PAIN
     Dosage: 50MG THREE TIME A DAY PO
     Route: 048
     Dates: start: 20011001, end: 20031227

REACTIONS (5)
  - CARDIOVASCULAR DISORDER [None]
  - DRUG DEPENDENCE [None]
  - PAIN [None]
  - ABDOMINAL PAIN UPPER [None]
  - ASTHENIA [None]
